FAERS Safety Report 7429074-0 (Version None)
Quarter: 2011Q2

REPORT INFORMATION
  Report Type: 
  Country: None (occurrence: None)
  Receive Date: 20110421
  Receipt Date: 20110419
  Transmission Date: 20111010
  Serious: Yes (Death, Life-Threatening, Hospitalization, Disabling, Other)
  Sender: FDA-Public Use
  Company Number: GB-TEVA-277547ISR

PATIENT
  Age: 3 Year
  Sex: Female
  Weight: 10 kg

DRUGS (1)
  1. ETOPOSIDE [Suspect]
     Indication: LYMPHOHISTIOCYTOSIS
     Dates: start: 20110221

REACTIONS (4)
  - WHEEZING [None]
  - CARDIAC ARREST [None]
  - HYPERTENSION [None]
  - SWELLING FACE [None]
